FAERS Safety Report 25033294 (Version 1)
Quarter: 2025Q1

REPORT INFORMATION
  Report Type: Spontaneous
  Country: ES (occurrence: ES)
  Receive Date: 20250303
  Receipt Date: 20250303
  Transmission Date: 20250409
  Serious: Yes (Other)
  Sender: ALEXION PHARMACEUTICALS
  Company Number: 2025002492-000

PATIENT
  Age: 82 Year

DRUGS (6)
  1. QUETIAPINE [Suspect]
     Active Substance: QUETIAPINE
     Dosage: 25 MILLIGRAM, QD
  2. PREGABALIN [Suspect]
     Active Substance: PREGABALIN
     Dosage: X 1 DOSAGE FORM  IN 24 HOUR
  3. PREGABALIN [Suspect]
     Active Substance: PREGABALIN
     Dosage: X 75 MILLIGRAM IN 8 HOUR. DUE TO AN ERROR SHE TOOK 1 TABLET EVERY 8 HOUR
  4. RIVASTIGMINE [Suspect]
     Active Substance: RIVASTIGMINE
     Dosage: X 9.5 MILLIGRAM IN 1 DAY
  5. DOMPERIDONE [Suspect]
     Active Substance: DOMPERIDONE
  6. BRINTELLIX [Concomitant]
     Active Substance: VORTIOXETINE HYDROBROMIDE
     Dosage: X 20 MILLIGRAM IN 1 DAY

REACTIONS (4)
  - Myoclonus [Recovered/Resolved]
  - Renal impairment [Recovering/Resolving]
  - Cystitis [Recovering/Resolving]
  - Hypotension [Unknown]
